FAERS Safety Report 16076518 (Version 1)
Quarter: 2019Q1

REPORT INFORMATION
  Report Type: Spontaneous
  Country: NL (occurrence: NL)
  Receive Date: 20190315
  Receipt Date: 20190315
  Transmission Date: 20190418
  Serious: Yes (Hospitalization)
  Sender: FDA-Public Use
  Company Number: NL-ACCORD-112945

PATIENT
  Age: 72 Year
  Sex: Male
  Weight: 83.7 kg

DRUGS (8)
  1. HYDROCHLOROTHIAZIDE. [Suspect]
     Active Substance: HYDROCHLOROTHIAZIDE
     Indication: HYPERTENSION
     Dosage: STRENGTH : 25 MG, 1 TIME PER DAY
     Dates: start: 2017, end: 20181002
  2. METFORMIN [Concomitant]
     Active Substance: METFORMIN HYDROCHLORIDE
     Dosage: STRENGTH : 500 MG, 2DD1
     Dates: start: 2015
  3. SPIRONOLACTONE. [Suspect]
     Active Substance: SPIRONOLACTONE
     Indication: HYPERTENSION
     Dosage: STRENGTH : 25 MG, 1 TIME PER DAY
     Dates: start: 201804, end: 20181002
  4. PHENPROCOUMON [Concomitant]
     Active Substance: PHENPROCOUMON
     Dosage: STRENGTH : 3 MG
     Dates: start: 2013
  5. TIMOLOL. [Concomitant]
     Active Substance: TIMOLOL
     Dosage: 3DD1
     Dates: start: 2013
  6. HYLAN [Concomitant]
     Active Substance: CARBOXYPOLYMETHYLENE\HYALURONATE SODIUM
     Dosage: 2DD1
     Dates: start: 2017
  7. OMEPRAZOLE. [Suspect]
     Active Substance: OMEPRAZOLE
     Indication: ABDOMINAL DISCOMFORT
     Dosage: STRENGTH : 40 MG, 1 TIME PER DAY
     Dates: start: 2016, end: 20181002
  8. IRBESARTAN. [Concomitant]
     Active Substance: IRBESARTAN
     Dosage: 1DD1, STRENGTH : 300 MG
     Dates: start: 2018

REACTIONS (4)
  - Hypokalaemia [Recovering/Resolving]
  - Hypocalcaemia [Recovering/Resolving]
  - Alkalosis hypochloraemic [Recovering/Resolving]
  - Hypomagnesaemia [Recovering/Resolving]

NARRATIVE: CASE EVENT DATE: 20180103
